FAERS Safety Report 8066007-0 (Version None)
Quarter: 2012Q1

REPORT INFORMATION
  Report Type: 
  Country: None (occurrence: None)
  Receive Date: 20120124
  Receipt Date: 20120118
  Transmission Date: 20120608
  Serious: Yes (Disabling)
  Sender: FDA-Public Use
  Company Number: DK-BAYER-201045250GPV

PATIENT
  Age: 41 Year
  Sex: Female
  Weight: 45 kg

DRUGS (39)
  1. EMPERAL [Concomitant]
     Route: 048
     Dates: start: 20081117, end: 20091104
  2. VITAMIN B COMPLEX CAP [Concomitant]
     Route: 030
     Dates: start: 20090116, end: 20100308
  3. GADAVIST [Suspect]
     Indication: ARTERIOVENOUS FISTULA OPERATION
     Dosage: UNK
     Dates: start: 20090901, end: 20090901
  4. OMNISCAN [Suspect]
     Indication: NUCLEAR MAGNETIC RESONANCE IMAGING
     Dosage: UNK
     Dates: start: 20071001, end: 20071001
  5. OMNISCAN [Suspect]
     Dosage: UNK
     Dates: start: 20060101
  6. RAMIPRIL [Concomitant]
     Dosage: 5 MILLIGRAM(S)
     Route: 048
     Dates: start: 20071001, end: 20090519
  7. FOLINSYRE ^SAD^ [Concomitant]
     Route: 048
     Dates: start: 20040121
  8. PRIMPERAN TAB [Concomitant]
     Indication: NAUSEA
     Dosage: 5 MG/ML
     Route: 030
     Dates: start: 20070928, end: 20091104
  9. KETOGAN NOVUM [Concomitant]
     Dosage: 5 MG/ML, TID, 0.5 ML
     Dates: start: 20070928, end: 20091112
  10. TRAMADOL HCL [Concomitant]
     Indication: PAIN
     Route: 048
     Dates: start: 20090219, end: 20090519
  11. MAGNEVIST [Suspect]
     Indication: SCAN WITH CONTRAST
     Dosage: 469 MG/ML, UNK
     Route: 042
     Dates: start: 20071001, end: 20071001
  12. MAGNEVIST [Suspect]
     Indication: NUCLEAR MAGNETIC RESONANCE IMAGING
     Dosage: UNK
     Dates: start: 20070101
  13. PLAVIX [Concomitant]
     Dosage: 75 MILLIGRAM(S)
     Route: 048
     Dates: start: 20071005
  14. CIPROFLOXACIN [Concomitant]
     Route: 048
     Dates: start: 20090309, end: 20090316
  15. VENOFER [Concomitant]
     Dosage: 20 MG/ML
     Route: 042
     Dates: start: 20040121, end: 20100402
  16. ARANESP [Concomitant]
     Indication: ANAEMIA
     Route: 042
     Dates: start: 20080429, end: 20091222
  17. PINEX [Concomitant]
     Indication: PAIN
     Dosage: 500 MILLIGRAM(S)
     Route: 048
     Dates: start: 20070820, end: 20090519
  18. RENAGEL [Concomitant]
     Dosage: 800 MILLIGRAM(S)
     Route: 048
     Dates: start: 20060817, end: 20090519
  19. INNOHEP [Concomitant]
     Indication: ANTICOAGULANT THERAPY
     Dosage: 1000 U, QD
     Route: 058
     Dates: start: 20041125
  20. NITROLINGUAL [Concomitant]
     Indication: ANGINA PECTORIS
     Dosage: 0.4 MG/DOSE, 1 PUST
     Route: 060
     Dates: start: 20070209
  21. B-COMBIN [Concomitant]
     Dosage: 6 ML, UNK
     Dates: start: 20040121
  22. ATORVASTATIN [Concomitant]
     Dates: start: 20060927
  23. ZOLPIDEM TARTRATE [Concomitant]
     Route: 048
     Dates: start: 20081205, end: 20090519
  24. MIMPARA [CINACALCET] [Concomitant]
     Route: 048
     Dates: start: 20090122
  25. CIRCADIN [Concomitant]
     Route: 048
     Dates: start: 20081219, end: 20090519
  26. VANCOMYCIN ^ALPHARMA^ [Concomitant]
     Dates: start: 20090126, end: 20090209
  27. NITROLINGUAL [Concomitant]
  28. CODEINE SULFATE [Concomitant]
     Indication: PAIN
     Dosage: 25 MILLIGRAM(S)
     Route: 048
     Dates: start: 20070820, end: 20090519
  29. GADAVIST [Suspect]
     Indication: NUCLEAR MAGNETIC RESONANCE IMAGING
  30. METOPROLOL SUCCINATE [Concomitant]
     Dosage: 50 MILLIGRAM(S)
     Route: 048
     Dates: start: 20061101, end: 20091104
  31. FOSRENOL [Concomitant]
     Route: 048
     Dates: start: 20060817, end: 20090708
  32. VANCOMYCIN [Concomitant]
     Indication: INFECTION
     Route: 042
     Dates: start: 20090605, end: 20090605
  33. TRANDATE [Concomitant]
     Dosage: 100 MILLIGRAM(S)
     Route: 048
     Dates: start: 20040121
  34. GADAVIST [Suspect]
     Indication: SCAN WITH CONTRAST
     Dosage: 1 MMOL/ML
     Route: 042
     Dates: start: 20090916, end: 20090916
  35. OMNISCAN [Suspect]
     Indication: ANGIOGRAM
     Dosage: 0,5 MMOL/ML
     Dates: start: 20060313, end: 20060313
  36. WARFARIN SODIUM [Concomitant]
     Indication: ANTICOAGULANT THERAPY
     Route: 048
     Dates: start: 20040121, end: 20091104
  37. ZEMPLAR [Concomitant]
     Dosage: 5 MICROGRAM(S)/ML
     Route: 042
     Dates: start: 20080317, end: 20090330
  38. FORTAMOL [Concomitant]
     Indication: PAIN
     Route: 048
     Dates: start: 20071106
  39. NYCOPLUS C-VITAMIN [Concomitant]
     Dates: start: 20040121

REACTIONS (19)
  - MUSCLE CONTRACTURE [None]
  - MUSCLE TIGHTNESS [None]
  - SKIN HYPERTROPHY [None]
  - SKIN BURNING SENSATION [None]
  - TENDON DISORDER [None]
  - SKIN TIGHTNESS [None]
  - GAIT DISTURBANCE [None]
  - JOINT SWELLING [None]
  - MUSCULOSKELETAL STIFFNESS [None]
  - BALANCE DISORDER [None]
  - OEDEMA PERIPHERAL [None]
  - NEPHROGENIC SYSTEMIC FIBROSIS [None]
  - PAIN [None]
  - ULCER [None]
  - JOINT STIFFNESS [None]
  - SKIN DISCOLOURATION [None]
  - SKIN INDURATION [None]
  - JOINT RANGE OF MOTION DECREASED [None]
  - SPIDER VEIN [None]
